FAERS Safety Report 9286611 (Version 2)
Quarter: 2013Q2

REPORT INFORMATION
  Report Type: Spontaneous
  Country: JP (occurrence: JP)
  Receive Date: 20130513
  Receipt Date: 20130627
  Transmission Date: 20140414
  Serious: Yes (Other)
  Sender: FDA-Public Use
  Company Number: PHHY2013JP041360

PATIENT
  Sex: Female

DRUGS (2)
  1. NEORAL [Suspect]
     Indication: FOCAL SEGMENTAL GLOMERULOSCLEROSIS
     Dosage: 100 MG, UNK
     Route: 048
  2. PREDNISOLONE [Suspect]
     Indication: FOCAL SEGMENTAL GLOMERULOSCLEROSIS
     Dosage: 15 MG, UNK
     Route: 048

REACTIONS (3)
  - Premature labour [Unknown]
  - Proteinuria [Unknown]
  - Maternal exposure during pregnancy [Unknown]
